FAERS Safety Report 13674412 (Version 1)
Quarter: 2017Q2

REPORT INFORMATION
  Report Type: Spontaneous
  Country: FR (occurrence: FR)
  Receive Date: 20170621
  Receipt Date: 20170621
  Transmission Date: 20170830
  Serious: Yes (Other)
  Sender: FDA-Public Use
  Company Number: FR-JNJFOC-20170616858

PATIENT
  Sex: Male

DRUGS (3)
  1. XARELTO [Suspect]
     Active Substance: RIVAROXABAN
     Indication: PULMONARY EMBOLISM
     Route: 048
     Dates: start: 2017, end: 2017
  2. XARELTO [Suspect]
     Active Substance: RIVAROXABAN
     Indication: DEEP VEIN THROMBOSIS
     Route: 048
     Dates: start: 2017, end: 2017
  3. METFORMINE [Concomitant]
     Active Substance: METFORMIN HYDROCHLORIDE
     Route: 065

REACTIONS (2)
  - Weight decreased [Unknown]
  - Diarrhoea [Unknown]

NARRATIVE: CASE EVENT DATE: 2017
